FAERS Safety Report 7669626-6 (Version None)
Quarter: 2011Q3

REPORT INFORMATION
  Report Type: 
  Country: None (occurrence: None)
  Receive Date: 20110803
  Receipt Date: 20110719
  Transmission Date: 20111222
  Serious: Yes (Hospitalization, Other)
  Sender: FDA-Public Use
  Company Number: 2011MA009086

PATIENT
  Age: 15 Year
  Sex: Male

DRUGS (12)
  1. DIAZEPAM [Suspect]
     Indication: FEBRILE CONVULSION
  2. CLONAZEPAM [Suspect]
     Indication: FEBRILE CONVULSION
  3. LAMOTRIGINE [Concomitant]
  4. CLOBAZAM [Concomitant]
  5. VALPROATE SODIUM [Concomitant]
  6. CEFOTAXIME SODIUM [Suspect]
     Indication: FEBRILE CONVULSION
  7. THIOPENTAL SODIUM [Suspect]
     Indication: FEBRILE CONVULSION
     Dosage: IV
     Route: 042
  8. ERYTHROMYCIN [Suspect]
     Indication: FEBRILE CONVULSION
  9. PIPERACILLIN AND TAZOBACTAM [Suspect]
     Indication: FEBRILE CONVULSION
  10. PHENYTOIN [Suspect]
     Indication: FEBRILE CONVULSION
  11. PARALDEHYDE (PARALDEHYDE) [Suspect]
     Indication: FEBRILE CONVULSION
  12. GENTAMICIN [Suspect]
     Indication: FEBRILE CONVULSION

REACTIONS (13)
  - BRAIN OEDEMA [None]
  - BRAIN HYPOXIA [None]
  - PNEUMONIA MYCOPLASMAL [None]
  - ENCEPHALOPATHY [None]
  - AKINESIA [None]
  - CEREBRAL ATROPHY [None]
  - DYSTONIA [None]
  - HYPOTONIA [None]
  - APHASIA [None]
  - CEREBRAL ISCHAEMIA [None]
  - COGNITIVE DISORDER [None]
  - LEARNING DISORDER [None]
  - MOVEMENT DISORDER [None]
